FAERS Safety Report 5814438-9 (Version None)
Quarter: 2008Q3

REPORT INFORMATION
  Report Type: 
  Country: None (occurrence: None)
  Receive Date: 20080718
  Receipt Date: 20080708
  Transmission Date: 20090109
  Serious: Yes (Other)
  Sender: FDA-Public Use
  Company Number: PHHY2008SE13697

PATIENT
  Sex: Female

DRUGS (5)
  1. DIOVAN [Suspect]
     Indication: HYPERTENSION
     Dosage: 160 MG IN THE MORNING AND 80 MG IN THE EVENING
     Dates: start: 20080604, end: 20080708
  2. METOPROLOL TARTRATE [Concomitant]
  3. INSULIN [Concomitant]
  4. ASPIRIN [Concomitant]
  5. PLAVIX [Concomitant]

REACTIONS (6)
  - DEPRESSION [None]
  - FATIGUE [None]
  - HYPERTENSION [None]
  - PRURITUS [None]
  - URTICARIA [None]
  - VISION BLURRED [None]
